FAERS Safety Report 23446471 (Version 1)
Quarter: 2024Q1

REPORT INFORMATION
  Report Type: Spontaneous
  Country: CA (occurrence: CA)
  Receive Date: 20240126
  Receipt Date: 20240126
  Transmission Date: 20240410
  Serious: Yes (Other)
  Sender: FDA-Public Use
  Company Number: CA-MYLANLABS-2024M1007371

PATIENT
  Age: 17 Year
  Sex: Female

DRUGS (3)
  1. LEVONORGESTREL [Suspect]
     Active Substance: LEVONORGESTREL
     Indication: Contraception
     Dosage: 52 MILLIGRAM
     Route: 015
  2. CEFAZOLIN [Suspect]
     Active Substance: CEFAZOLIN
     Indication: Pyrexia
     Dosage: UNK
     Route: 065
  3. METRONIDAZOLE [Suspect]
     Active Substance: METRONIDAZOLE
     Indication: Pyrexia
     Dosage: UNK
     Route: 065

REACTIONS (2)
  - Tubo-ovarian abscess [Recovering/Resolving]
  - Drug ineffective [Recovering/Resolving]
